FAERS Safety Report 10062708 (Version 3)
Quarter: 2014Q2

REPORT INFORMATION
  Report Type: Spontaneous
  Country: JP (occurrence: JP)
  Receive Date: 20140407
  Receipt Date: 20140529
  Transmission Date: 20141212
  Serious: Yes (Other)
  Sender: FDA-Public Use
  Company Number: JP-EISAI INC-E2090-03200-SPO-JP

PATIENT
  Age: 8 Month
  Sex: Female

DRUGS (4)
  1. EXCEGRAN [Suspect]
     Indication: INFANTILE SPASMS
     Route: 048
     Dates: start: 20130219
  2. DEPAKENE [Suspect]
     Indication: INFANTILE SPASMS
     Dosage: 255 MG/DAY
     Route: 048
     Dates: start: 20121219, end: 20130218
  3. DEPAKENE [Suspect]
     Dosage: DOSE DECREASED (UNKNOWN)
     Route: 048
     Dates: start: 20130219, end: 20130226
  4. CORTROSYN Z [Concomitant]
     Indication: INFANTILE SPASMS
     Dosage: 0.1 MG/DAY
     Route: 030
     Dates: start: 20121226, end: 20130219

REACTIONS (1)
  - Thrombocytopenia [Recovered/Resolved]
